FAERS Safety Report 18203102 (Version 16)
Quarter: 2025Q3

REPORT INFORMATION
  Report Type: Report from Study
  Country: AR (occurrence: AR)
  Receive Date: 20200827
  Receipt Date: 20250717
  Transmission Date: 20251021
  Serious: Yes (Hospitalization, Other)
  Sender: NOVARTIS
  Company Number: PHHY2019AR226215

PATIENT
  Age: 67 Year
  Sex: Male

DRUGS (8)
  1. COSENTYX [Suspect]
     Active Substance: SECUKINUMAB
     Indication: Psoriatic arthropathy
     Dosage: 300 MG, QMO
     Route: 058
     Dates: start: 201809
  2. COSENTYX [Suspect]
     Active Substance: SECUKINUMAB
     Indication: Psoriasis
     Dosage: 300 MG, QMO
     Route: 058
     Dates: start: 20190204, end: 202008
  3. COSENTYX [Suspect]
     Active Substance: SECUKINUMAB
     Dosage: 300 MG, QMO
     Route: 058
     Dates: start: 20190926
  4. COSENTYX [Suspect]
     Active Substance: SECUKINUMAB
     Dosage: 300 MG, QD
     Route: 058
     Dates: end: 202008
  5. COSENTYX [Suspect]
     Active Substance: SECUKINUMAB
     Dosage: 300 MG, QMO
     Route: 058
  6. COSENTYX [Suspect]
     Active Substance: SECUKINUMAB
     Dosage: 300 MG, Q2MO
     Route: 065
  7. COSENTYX [Suspect]
     Active Substance: SECUKINUMAB
     Dosage: 300 MG, QMO
     Route: 058
  8. LOSARTAN [Concomitant]
     Active Substance: LOSARTAN
     Indication: Product used for unknown indication
     Route: 065

REACTIONS (22)
  - Skin ulcer [Unknown]
  - Infected skin ulcer [Unknown]
  - Skin sensitisation [Unknown]
  - Vein rupture [Unknown]
  - Chest injury [Unknown]
  - Mobility decreased [Unknown]
  - Nervousness [Not Recovered/Not Resolved]
  - Acne [Unknown]
  - Peripheral vascular disorder [Unknown]
  - Fatigue [Unknown]
  - Scab [Unknown]
  - Pain in extremity [Unknown]
  - Arthralgia [Unknown]
  - Arthropod bite [Recovering/Resolving]
  - Erythema [Unknown]
  - Psoriasis [Not Recovered/Not Resolved]
  - Pruritus [Unknown]
  - Skin lesion [Not Recovered/Not Resolved]
  - Condition aggravated [Unknown]
  - General physical condition abnormal [Unknown]
  - Product availability issue [Unknown]
  - Pain [Unknown]

NARRATIVE: CASE EVENT DATE: 20190910
